FAERS Safety Report 21974235 (Version 1)
Quarter: 2023Q1

REPORT INFORMATION
  Report Type: Spontaneous
  Country: US (occurrence: None)
  Receive Date: 20230208
  Receipt Date: 20230208
  Transmission Date: 20230418
  Serious: Yes (Disabling)
  Sender: FDA-Public Use
  Company Number: None

PATIENT
  Age: 44 Year
  Sex: Female

DRUGS (1)
  1. DEXTROAMPHET SACCHARAT, AMPHET ASPARTATE, DEXTROAMPHET SULFATE AND AMP [Suspect]
     Active Substance: AMPHETAMINE ASPARTATE\AMPHETAMINE SULFATE\DEXTROAMPHETAMINE SACCHARATE\DEXTROAMPHETAMINE SULFATE
     Indication: Attention deficit hyperactivity disorder
     Dosage: OTHER QUANTITY : 1 CAPSULE(S);?FREQUENCY : TWICE A DAY;?
     Route: 048

REACTIONS (14)
  - Drug ineffective [None]
  - Fatigue [None]
  - Feeling abnormal [None]
  - Depression [None]
  - Apathy [None]
  - Loss of personal independence in daily activities [None]
  - Family stress [None]
  - Job dissatisfaction [None]
  - Educational problem [None]
  - Economic problem [None]
  - Impaired work ability [None]
  - Depression [None]
  - Suicidal behaviour [None]
  - Product substitution issue [None]

NARRATIVE: CASE EVENT DATE: 20221130
